FAERS Safety Report 24331882 (Version 1)
Quarter: 2024Q3

REPORT INFORMATION
  Report Type: Spontaneous
  Country: DE (occurrence: DE)
  Receive Date: 20240918
  Receipt Date: 20240918
  Transmission Date: 20241017
  Serious: Yes (Hospitalization)
  Sender: UCB
  Company Number: DE-UCBSA-2024045911

PATIENT
  Sex: Male

DRUGS (6)
  1. BIMZELX [Suspect]
     Active Substance: BIMEKIZUMAB-BKZX
     Indication: Psoriasis
     Dosage: 320 MILLIGRAM, UNK
     Dates: start: 202110, end: 202212
  2. BIMZELX [Suspect]
     Active Substance: BIMEKIZUMAB-BKZX
     Indication: Psoriatic arthropathy
  3. METHOTREXATE [Concomitant]
     Active Substance: METHOTREXATE
     Indication: Psoriasis
     Dosage: 10 MILLIGRAM, WEEKLY (QW)
     Route: 048
  4. METHOTREXATE [Concomitant]
     Active Substance: METHOTREXATE
     Indication: Psoriatic arthropathy
     Dosage: UNK UNK, WEEKLY (QW)
     Route: 048
  5. BRODALUMAB [Concomitant]
     Active Substance: BRODALUMAB
     Indication: Psoriasis
  6. BRODALUMAB [Concomitant]
     Active Substance: BRODALUMAB
     Indication: Psoriatic arthropathy

REACTIONS (1)
  - Oesophageal stenosis [Recovered/Resolved]

NARRATIVE: CASE EVENT DATE: 20220201
